FAERS Safety Report 8125641-X (Version None)
Quarter: 2012Q1

REPORT INFORMATION
  Report Type: 
  Country: None (occurrence: None)
  Receive Date: 20120209
  Receipt Date: 20120201
  Transmission Date: 20120608
  Serious: Yes (Hospitalization, Other)
  Sender: FDA-Public Use
  Company Number: US-BAYER-201033464NA

PATIENT
  Age: 21 Year
  Sex: Female
  Weight: 63.492 kg

DRUGS (3)
  1. VICODIN [Concomitant]
  2. YASMIN [Suspect]
     Indication: CONTRACEPTION
     Dosage: UNK UNK, UNK
     Route: 048
     Dates: start: 20070201, end: 20081101
  3. YAZ [Suspect]
     Indication: CONTRACEPTION
     Dosage: UNK
     Dates: start: 20051201, end: 20061201

REACTIONS (10)
  - FLATULENCE [None]
  - CONSTIPATION [None]
  - CHOLECYSTECTOMY [None]
  - ANXIETY [None]
  - ABDOMINAL DISTENSION [None]
  - DIARRHOEA [None]
  - CHOLECYSTITIS CHRONIC [None]
  - DYSPEPSIA [None]
  - SCAR [None]
  - DEPRESSION [None]
